FAERS Safety Report 20734632 (Version 2)
Quarter: 2022Q2

REPORT INFORMATION
  Report Type: Report from Study
  Country: CA (occurrence: CA)
  Receive Date: 20220421
  Receipt Date: 20220512
  Transmission Date: 20220721
  Serious: Yes (Other)
  Sender: FDA-Public Use
  Company Number: CA-NOVARTISPH-NVSC2021CA113931

PATIENT
  Age: 59 Year
  Sex: Female
  Weight: 80 kg

DRUGS (5)
  1. TRAMETINIB [Suspect]
     Active Substance: TRAMETINIB
     Indication: Ovarian cancer
     Dosage: 1.5 MG, QD
     Route: 048
     Dates: start: 20210309, end: 20220412
  2. TRAMETINIB [Suspect]
     Active Substance: TRAMETINIB
     Dosage: 2 MG, QD
     Route: 048
     Dates: start: 20210310, end: 20210330
  3. TRAMETINIB [Suspect]
     Active Substance: TRAMETINIB
     Dosage: 2 MG, QD
     Route: 048
     Dates: start: 20210406, end: 20210510
  4. TRAMETINIB [Suspect]
     Active Substance: TRAMETINIB
     Dosage: 1.5 MG, QD
     Route: 048
     Dates: start: 20210518
  5. TRAMETINIB [Suspect]
     Active Substance: TRAMETINIB
     Dosage: 1.5 MG, QD
     Route: 048
     Dates: end: 20220412

REACTIONS (6)
  - Mucosal inflammation [Recovered/Resolved]
  - Mucosal pain [Unknown]
  - Swollen tongue [Unknown]
  - Ovarian cancer [Recovered/Resolved]
  - Malignant neoplasm progression [Recovered/Resolved]
  - Dermatitis acneiform [Recovered/Resolved with Sequelae]

NARRATIVE: CASE EVENT DATE: 20210323
